FAERS Safety Report 8883202 (Version 2)
Quarter: 2012Q4

REPORT INFORMATION
  Report Type: Report from Study
  Country: BE (occurrence: BE)
  Receive Date: 20121102
  Receipt Date: 20121214
  Transmission Date: 20130627
  Serious: Yes (Other)
  Sender: FDA-Public Use
  Company Number: BE-ROCHE-1148721

PATIENT
  Age: 72 Year
  Sex: Female

DRUGS (15)
  1. TRASTUZUMAB [Suspect]
     Indication: BREAST CANCER
     Dosage: LAROTAXEL and TRASTUZUMAB therapy
     Route: 065
     Dates: start: 20080520
  2. TRASTUZUMAB [Suspect]
     Dosage: TRASTUZUMAB-PACLITAXEL therapy
     Route: 065
     Dates: start: 20080624, end: 20080729
  3. TRASTUZUMAB [Suspect]
     Dosage: LAST CURE OF TRASTUZUMAB
     Route: 065
     Dates: end: 20090623
  4. TRASTUZUMAB [Suspect]
     Dosage: TRASTUZUMAB and EXEMESTANE therapy
     Route: 065
     Dates: start: 20110728, end: 20120413
  5. TRASTUZUMAB [Suspect]
     Dosage: docetaxel-trastuzumab therapy
     Route: 065
     Dates: start: 20111017
  6. TRASTUZUMAB [Suspect]
     Dosage: TRASTUZUMAB + VINORELBINE TARTRATE therapy
     Route: 065
     Dates: start: 20120416
  7. CAPECITABINE [Suspect]
     Indication: BREAST CANCER
     Dosage: CAPECITABINE - LAPATINIB therapy
     Route: 065
     Dates: start: 20120820
  8. LAROTAXEL [Suspect]
     Indication: BREAST CANCER
     Dosage: 1st cycle
     Route: 065
     Dates: start: 20080520
  9. PACLITAXEL [Suspect]
     Indication: BREAST CANCER
     Route: 065
     Dates: start: 20080724, end: 20080729
  10. LAPATINIB [Suspect]
     Indication: BREAST CANCER
     Route: 065
     Dates: start: 20120820
  11. ANASTROZOLE [Suspect]
     Indication: BREAST CANCER
     Route: 065
     Dates: start: 200811, end: 20110720
  12. EXEMESTANE [Suspect]
     Indication: BREAST CANCER
     Route: 065
     Dates: start: 20110728
  13. DOCETAXEL [Suspect]
     Indication: BREAST CANCER
     Route: 065
     Dates: start: 20111017
  14. VINORELBINE [Suspect]
     Indication: BREAST CANCER
     Route: 065
     Dates: start: 20120416
  15. NOVONORM [Concomitant]

REACTIONS (5)
  - Disease progression [Unknown]
  - Liver disorder [Unknown]
  - Cardiotoxicity [Recovered/Resolved]
  - Cardiac failure [Recovered/Resolved]
  - Back pain [Unknown]
